FAERS Safety Report 20621147 (Version 1)
Quarter: 2022Q1

REPORT INFORMATION
  Report Type: Spontaneous
  Country: FR (occurrence: FR)
  Receive Date: 20220322
  Receipt Date: 20220322
  Transmission Date: 20220424
  Serious: Yes (Congenital Anomaly, Other)
  Sender: FDA-Public Use
  Company Number: FR-ABBVIE-22K-056-4321371-00

PATIENT
  Sex: Female

DRUGS (2)
  1. VALPROATE SODIUM [Suspect]
     Active Substance: VALPROATE SODIUM
     Indication: Maternal exposure timing unspecified
     Route: 064
  2. CLAMOXYL [Concomitant]
     Indication: Product used for unknown indication

REACTIONS (37)
  - Congenital cystic kidney disease [Unknown]
  - Foetal exposure during pregnancy [Unknown]
  - Joint laxity [Unknown]
  - Hemiparesis [Unknown]
  - Hypertonia [Unknown]
  - Hypotonia [Unknown]
  - Autism spectrum disorder [Unknown]
  - Dysmorphism [Unknown]
  - Spina bifida [Unknown]
  - Limb asymmetry [Unknown]
  - Cognitive disorder [Unknown]
  - Balance disorder [Unknown]
  - Speech disorder developmental [Unknown]
  - Behaviour disorder [Unknown]
  - Scoliosis [Unknown]
  - Motor developmental delay [Unknown]
  - Coordination abnormal [Unknown]
  - Disturbance in attention [Unknown]
  - Mental disorder [Unknown]
  - Talipes [Unknown]
  - Learning disorder [Unknown]
  - Foetal anticonvulsant syndrome [Unknown]
  - Gait disturbance [Unknown]
  - Educational problem [Unknown]
  - Personal relationship issue [Unknown]
  - Affect lability [Unknown]
  - Eye disorder [Unknown]
  - Psychiatric symptom [Unknown]
  - Ear, nose and throat disorder [Unknown]
  - Muscle disorder [Unknown]
  - Ear, nose and throat disorder [Unknown]
  - Ear, nose and throat disorder [Unknown]
  - Anaemia neonatal [Unknown]
  - Bacteriuria [Unknown]
  - Generalised anxiety disorder [Unknown]
  - Sluggishness [Unknown]
  - Enuresis [Unknown]
